FAERS Safety Report 22981359 (Version 2)
Quarter: 2023Q4

REPORT INFORMATION
  Report Type: Report from Study
  Country: FR (occurrence: FR)
  Receive Date: 20230925
  Receipt Date: 20231025
  Transmission Date: 20240110
  Serious: Yes (Disabling, Other)
  Sender: FDA-Public Use
  Company Number: FR-ABBVIE-5418288

PATIENT
  Age: 79 Year
  Sex: Male

DRUGS (2)
  1. CARBIDOPA\LEVODOPA [Suspect]
     Active Substance: CARBIDOPA\LEVODOPA
     Indication: Parkinson^s disease
     Route: 050
     Dates: start: 20221017, end: 2023
  2. CARBIDOPA\LEVODOPA [Suspect]
     Active Substance: CARBIDOPA\LEVODOPA
     Dosage: 3.2 ML/H FLOW RATE
     Route: 050
     Dates: start: 2023

REACTIONS (4)
  - On and off phenomenon [Not Recovered/Not Resolved]
  - Verbal abuse [Not Recovered/Not Resolved]
  - Dyskinesia [Not Recovered/Not Resolved]
  - Transient ischaemic attack [Not Recovered/Not Resolved]
